FAERS Safety Report 4584430-3 (Version None)
Quarter: 2005Q1

REPORT INFORMATION
  Report Type: 
  Country: None (occurrence: None)
  Receive Date: 20050125
  Receipt Date: 20041110
  Transmission Date: 20050727
  Serious: No
  Sender: FDA-Public Use
  Company Number: USA041183726

PATIENT
  Age: 78 Year
  Sex: Female

DRUGS (4)
  1. FORTEO [Suspect]
     Indication: OSTEOPOROSIS
     Dates: start: 20041101
  2. PREDNISONE [Concomitant]
  3. BENTYL [Concomitant]
  4. CALCIUM GLUCONATE [Concomitant]

REACTIONS (6)
  - CHILLS [None]
  - GASTROENTERITIS VIRAL [None]
  - INJECTION SITE HAEMORRHAGE [None]
  - NAUSEA [None]
  - PYREXIA [None]
  - RETCHING [None]
